FAERS Safety Report 20170802 (Version 1)
Quarter: 2021Q4

REPORT INFORMATION
  Report Type: Spontaneous
  Country: US (occurrence: None)
  Receive Date: 20211210
  Receipt Date: 20211210
  Transmission Date: 20220303
  Serious: Yes (Other)
  Sender: FDA-Public Use
  Company Number: None

PATIENT
  Age: 29 Year
  Sex: Male
  Weight: 124 kg

DRUGS (1)
  1. DULOXETINE HYDROCHLORIDE [Suspect]
     Active Substance: DULOXETINE HYDROCHLORIDE
     Indication: Depression
     Dosage: FREQUENCY : DAILY;?
     Route: 048
     Dates: start: 20200522, end: 20200709

REACTIONS (5)
  - Seizure [None]
  - Arthralgia [None]
  - Dyspnoea [None]
  - Dyspnoea [None]
  - Muscle spasms [None]

NARRATIVE: CASE EVENT DATE: 20200709
